FAERS Safety Report 7805092-5 (Version None)
Quarter: 2011Q4

REPORT INFORMATION
  Report Type: 
  Country: None (occurrence: None)
  Receive Date: 20111010
  Receipt Date: 20110927
  Transmission Date: 20120403
  Serious: Yes (Other)
  Sender: FDA-Public Use
  Company Number: PHHY2011DE87681

PATIENT
  Age: 4 Year

DRUGS (4)
  1. CYCLOSPORINE [Suspect]
     Indication: LIVER TRANSPLANT
  2. CYCLOSPORINE [Suspect]
     Indication: IMMUNOSUPPRESSION
  3. PREDNISOLONE [Suspect]
     Indication: LIVER TRANSPLANT
     Dosage: 15 MG/M2, UNK
  4. BASILIXIMAB [Suspect]
     Indication: LIVER TRANSPLANT

REACTIONS (2)
  - NEPHROPATHY TOXIC [None]
  - DRUG INEFFECTIVE [None]
